FAERS Safety Report 9416444 (Version 1)
Quarter: 2013Q3

REPORT INFORMATION
  Report Type: Spontaneous
  Country: IT (occurrence: None)
  Receive Date: 20130718
  Receipt Date: 20130718
  Transmission Date: 20140515
  Serious: Yes (Hospitalization)
  Sender: FDA-Public Use
  Company Number: 1793319

PATIENT
  Age: 69 Year
  Sex: Male

DRUGS (14)
  1. CYTARABINE [Suspect]
     Indication: ACUTE MYELOID LEUKAEMIA
     Dates: start: 20130111, end: 20130115
  2. FLUDARABINE [Suspect]
     Dates: start: 20130111, end: 20130115
  3. ALLOPURINOL [Concomitant]
  4. DECATRON [Concomitant]
  5. LASIX [Concomitant]
  6. GALXZIDIM [Concomitant]
  7. COVERSYL [Concomitant]
  8. MYELOSTIM [Concomitant]
  9. LAEVOLAC [Concomitant]
  10. ACICLIN [Concomitant]
  11. MYCOSTATIN [Concomitant]
  12. GADRAL [Concomitant]
  13. VISUMETAZONE [Concomitant]
  14. ZOFRAN [Concomitant]

REACTIONS (5)
  - Ventricular extrasystoles [None]
  - Angina pectoris [None]
  - Acute coronary syndrome [None]
  - Staphylococcal infection [None]
  - Enterococcal infection [None]
